FAERS Safety Report 23674431 (Version 2)
Quarter: 2024Q1

REPORT INFORMATION
  Report Type: Spontaneous
  Country: JP (occurrence: JP)
  Receive Date: 20240326
  Receipt Date: 20240329
  Transmission Date: 20240410
  Serious: Yes (Death, Life-Threatening, Hospitalization, Other)
  Sender: FDA-Public Use
  Company Number: JP-MLMSERVICE-20240315-4887703-2

PATIENT
  Age: 74 Year
  Sex: Male

DRUGS (6)
  1. OXALIPLATIN [Suspect]
     Active Substance: OXALIPLATIN
     Indication: Metastases to peritoneum
     Dosage: 130 MG/M2 FIFTH DOSE, 190MG/BODY
     Dates: start: 2022
  2. OXALIPLATIN [Suspect]
     Active Substance: OXALIPLATIN
     Indication: Gastric cancer stage IV
     Dosage: FIRST TO FOURTH DOSE
     Dates: start: 202205, end: 2022
  3. NIVOLUMAB [Suspect]
     Active Substance: NIVOLUMAB
     Indication: Gastric cancer stage IV
     Dosage: FIRST TO FOURTH DOSE
     Dates: start: 202205, end: 2022
  4. NIVOLUMAB [Suspect]
     Active Substance: NIVOLUMAB
     Indication: Metastases to peritoneum
     Dosage: FIFTH DOSE INCLUDED OF 360 MG/BODY
     Dates: start: 2022
  5. GIMERACIL\OTERACIL\TEGAFUR [Suspect]
     Active Substance: GIMERACIL\OTERACIL POTASSIUM\TEGAFUR
     Indication: Gastric cancer stage IV
     Dosage: FIFTH DOSE, 80MG/BODY
     Dates: start: 2022
  6. GIMERACIL\OTERACIL\TEGAFUR [Suspect]
     Active Substance: GIMERACIL\OTERACIL POTASSIUM\TEGAFUR
     Indication: Metastases to peritoneum
     Dosage: FIRST TO FOURTH DOSE
     Dates: start: 202205, end: 2022

REACTIONS (10)
  - Pneumonia bacterial [Fatal]
  - Cough [Fatal]
  - Dyspnoea [Fatal]
  - Pyrexia [Fatal]
  - Hospitalisation [Fatal]
  - Organising pneumonia [Fatal]
  - Diffuse alveolar damage [Fatal]
  - Myocardial infarction [Fatal]
  - Disseminated intravascular coagulation [Fatal]
  - Renal infarct [Fatal]

NARRATIVE: CASE EVENT DATE: 20220101
